FAERS Safety Report 9346716 (Version 1)
Quarter: 2013Q2

REPORT INFORMATION
  Report Type: Other
  Country: IT (occurrence: IT)
  Receive Date: 20130613
  Receipt Date: 20130613
  Transmission Date: 20140414
  Serious: Yes (Death)
  Sender: FDA-Public Use
  Company Number: IT-WATSON-2013-10935

PATIENT
  Age: 67 Year
  Sex: Male

DRUGS (1)
  1. GEMCITABINE (UNKNOWN) [Suspect]
     Indication: NON-SMALL CELL LUNG CANCER
     Dosage: 1700 MG,WEEK
     Route: 042
     Dates: start: 20130514, end: 20130514

REACTIONS (4)
  - Hepatorenal syndrome [Fatal]
  - Hypotension [Fatal]
  - Transaminases increased [Fatal]
  - Hypercreatininaemia [Fatal]
